FAERS Safety Report 17112578 (Version 6)
Quarter: 2021Q2

REPORT INFORMATION
  Report Type: Report from Study
  Country: BR (occurrence: BR)
  Receive Date: 20191204
  Receipt Date: 20210617
  Transmission Date: 20210716
  Serious: Yes (Other)
  Sender: FDA-Public Use
  Company Number: PHHY2019BR214155

PATIENT
  Age: 66 Year
  Sex: Female

DRUGS (9)
  1. COSENTYX [Suspect]
     Active Substance: SECUKINUMAB
     Dosage: UNK UNK, Q2W
     Route: 065
  2. COSENTYX [Suspect]
     Active Substance: SECUKINUMAB
     Indication: PSORIASIS
     Dosage: UNK
     Route: 065
     Dates: start: 20190812
  3. RANITIDINE. [Suspect]
     Active Substance: RANITIDINE
     Indication: PRODUCT USED FOR UNKNOWN INDICATION
     Route: 065
  4. TETANUS TOXOID ADSORBED (VACCINE) [Suspect]
     Active Substance: CLOSTRIDIUM TETANI TOXOID ANTIGEN (FORMALDEHYDE INACTIVATED)
     Indication: HEPATITIS B
     Dosage: UNK
     Route: 065
  5. RIVOTRIL [Concomitant]
     Active Substance: CLONAZEPAM
     Indication: PRODUCT USED FOR UNKNOWN INDICATION
     Dosage: UNK
     Route: 065
  6. COSENTYX [Suspect]
     Active Substance: SECUKINUMAB
     Dosage: UNK
     Route: 065
  7. COSENTYX [Suspect]
     Active Substance: SECUKINUMAB
     Dosage: 300 MG, QMO
     Route: 065
  8. COSENTYX [Suspect]
     Active Substance: SECUKINUMAB
     Dosage: UNK
     Route: 065
     Dates: start: 20200104
  9. COSENTYX [Suspect]
     Active Substance: SECUKINUMAB
     Indication: PSORIATIC ARTHROPATHY
     Dosage: UNK
     Route: 065
     Dates: start: 201910

REACTIONS (53)
  - Mobility decreased [Unknown]
  - Malaise [Unknown]
  - Nausea [Recovering/Resolving]
  - Parosmia [Not Recovered/Not Resolved]
  - Inappropriate schedule of product administration [Unknown]
  - Sluggishness [Unknown]
  - Tendonitis [Not Recovered/Not Resolved]
  - Osteopenia [Unknown]
  - Exostosis [Not Recovered/Not Resolved]
  - Liver disorder [Recovering/Resolving]
  - Pyrexia [Recovered/Resolved]
  - Abdominal discomfort [Unknown]
  - Skeletal injury [Unknown]
  - Nasopharyngitis [Recovered/Resolved]
  - Dizziness [Recovering/Resolving]
  - Tremor [Unknown]
  - Headache [Recovering/Resolving]
  - Sneezing [Recovered/Resolved]
  - Rhinitis [Recovered/Resolved]
  - Sinusitis [Recovered/Resolved]
  - Poisoning [Recovering/Resolving]
  - Pain in extremity [Not Recovered/Not Resolved]
  - Secretion discharge [Recovered/Resolved]
  - Tendon disorder [Unknown]
  - Expired product administered [Unknown]
  - Cataract [Not Recovered/Not Resolved]
  - Vascular resistance systemic decreased [Unknown]
  - Memory impairment [Unknown]
  - Pain [Not Recovered/Not Resolved]
  - Sinusitis [Not Recovered/Not Resolved]
  - Osteoarthritis [Unknown]
  - Arthropathy [Unknown]
  - Gastric disorder [Recovering/Resolving]
  - Asthenia [Recovering/Resolving]
  - Panic reaction [Recovered/Resolved]
  - Nail disorder [Not Recovered/Not Resolved]
  - Decreased immune responsiveness [Unknown]
  - Arthralgia [Unknown]
  - Arthralgia [Not Recovered/Not Resolved]
  - Sinus pain [Recovering/Resolving]
  - Eye disorder [Not Recovered/Not Resolved]
  - Visual impairment [Not Recovered/Not Resolved]
  - Joint injury [Unknown]
  - Cough [Unknown]
  - Drug ineffective [Unknown]
  - Drug-induced liver injury [Unknown]
  - Deafness [Not Recovered/Not Resolved]
  - Nasal discomfort [Recovered/Resolved]
  - Gait disturbance [Not Recovered/Not Resolved]
  - Discharge [Recovering/Resolving]
  - Nasal congestion [Recovering/Resolving]
  - Chills [Unknown]
  - Oropharyngeal pain [Unknown]

NARRATIVE: CASE EVENT DATE: 2019
